FAERS Safety Report 20144212 (Version 1)
Quarter: 2021Q4

REPORT INFORMATION
  Report Type: Report from Study
  Country: LB (occurrence: LB)
  Receive Date: 20211203
  Receipt Date: 20211203
  Transmission Date: 20220303
  Serious: Yes (Death, Other)
  Sender: FDA-Public Use
  Company Number: LB-TAKEDA-2021TUS076687

PATIENT
  Sex: Female

DRUGS (1)
  1. PONATINIB [Suspect]
     Active Substance: PONATINIB
     Indication: Philadelphia positive acute lymphocytic leukaemia
     Dosage: 30 MILLIGRAM
     Route: 048
     Dates: start: 20210301

REACTIONS (2)
  - Philadelphia positive acute lymphocytic leukaemia [Fatal]
  - Drug intolerance [Unknown]
